FAERS Safety Report 20382281 (Version 1)
Quarter: 2022Q1

REPORT INFORMATION
  Report Type: Spontaneous
  Country: US (occurrence: US)
  Receive Date: 20220127
  Receipt Date: 20220127
  Transmission Date: 20220423
  Serious: Yes (Hospitalization)
  Sender: FDA-Public Use
  Company Number: US-PIRAMAL ENTERPRISES LIMITED-2020-PEL-000596

PATIENT

DRUGS (3)
  1. GABLOFEN [Suspect]
     Active Substance: BACLOFEN
     Indication: Product used for unknown indication
     Dosage: 100 MICROGRAM/DAY
     Route: 037
  2. GABLOFEN [Suspect]
     Active Substance: BACLOFEN
     Dosage: 124 MICROGRAM/DAY
     Route: 037
  3. GABLOFEN [Suspect]
     Active Substance: BACLOFEN
     Dosage: 99 MICROGRAM/DAY
     Route: 037

REACTIONS (6)
  - Back pain [Recovering/Resolving]
  - Pain in extremity [Recovering/Resolving]
  - Adverse drug reaction [Unknown]
  - Product dose omission issue [Unknown]
  - Implant site extravasation [Unknown]
  - Implant site pain [Recovering/Resolving]
